FAERS Safety Report 22192175 (Version 1)
Quarter: 2023Q2

REPORT INFORMATION
  Report Type: Spontaneous
  Country: US (occurrence: US)
  Receive Date: 20230410
  Receipt Date: 20230410
  Transmission Date: 20230722
  Serious: No
  Sender: FDA-Public Use
  Company Number: US-MYLANLABS-2023M1035399

PATIENT
  Sex: Female
  Weight: 122.9 kg

DRUGS (1)
  1. SEMGLEE (INSULIN GLARGINE-YFGN) [Suspect]
     Active Substance: INSULIN GLARGINE-YFGN
     Indication: Diabetes mellitus
     Dosage: 80 INTERNATIONAL UNIT, QD (40 IN THE MORNING AND 40 AT NIGHT)
     Route: 058
     Dates: start: 20230328

REACTIONS (2)
  - Inappropriate schedule of product administration [Unknown]
  - Device issue [Unknown]
